FAERS Safety Report 4681050-7 (Version None)
Quarter: 2005Q2

REPORT INFORMATION
  Report Type: 
  Country: None (occurrence: None)
  Receive Date: 20050601
  Receipt Date: 20050524
  Transmission Date: 20051028
  Serious: Yes (Hospitalization, Other)
  Sender: FDA-Public Use
  Company Number: 2005079317

PATIENT
  Sex: Male
  Weight: 74.8435 kg

DRUGS (7)
  1. LIPITOR [Suspect]
     Indication: BLOOD CHOLESTEROL INCREASED
     Dosage: 40 MG (40 MG, 1 IN 1 D), ORAL
     Route: 048
     Dates: start: 20030128
  2. ALLOPURINOL [Concomitant]
  3. COZAAR [Concomitant]
  4. WARFARIN SODIUM [Concomitant]
  5. LANOXIN [Concomitant]
  6. GLUCOTROL [Concomitant]
  7. HYTRIN [Concomitant]

REACTIONS (13)
  - ARTHRITIS [None]
  - CONDITION AGGRAVATED [None]
  - DIPLOPIA [None]
  - DRY MOUTH [None]
  - HIP ARTHROPLASTY [None]
  - MICTURITION URGENCY [None]
  - MYALGIA [None]
  - NOCTURIA [None]
  - PAIN IN EXTREMITY [None]
  - POLLAKIURIA [None]
  - STENT PLACEMENT [None]
  - TENDONITIS [None]
  - VISION BLURRED [None]
